FAERS Safety Report 7120821-4 (Version None)
Quarter: 2010Q4

REPORT INFORMATION
  Report Type: 
  Country: None (occurrence: None)
  Receive Date: 20101119
  Receipt Date: 20101119
  Transmission Date: 20110411
  Serious: Yes (Other)
  Sender: FDA-Public Use
  Company Number: None

PATIENT
  Sex: Female
  Weight: 45.3597 kg

DRUGS (1)
  1. OXYCONTIN [Suspect]
     Indication: PAIN
     Dosage: 20 MG 2X
     Dates: start: 20100907

REACTIONS (9)
  - DRUG INEFFECTIVE [None]
  - FATIGUE [None]
  - HEADACHE [None]
  - LOSS OF EMPLOYMENT [None]
  - OEDEMA PERIPHERAL [None]
  - PRODUCT FORMULATION ISSUE [None]
  - PRURITUS [None]
  - QUALITY OF LIFE DECREASED [None]
  - SOMNOLENCE [None]
